FAERS Safety Report 7333595-9 (Version None)
Quarter: 2011Q1

REPORT INFORMATION
  Report Type: 
  Country: None (occurrence: None)
  Receive Date: 20110304
  Receipt Date: 20110222
  Transmission Date: 20110831
  Serious: Yes (Hospitalization)
  Sender: FDA-Public Use
  Company Number: US-WATSON-2011-02188

PATIENT
  Sex: Female
  Weight: 55.6 kg

DRUGS (7)
  1. GELNIQUE [Suspect]
     Indication: MICTURITION URGENCY
  2. GELNIQUE [Suspect]
     Indication: URINARY INCONTINENCE
     Dosage: 1 SACHET DAILY
     Route: 061
     Dates: start: 20110126
  3. LIPITOR [Concomitant]
     Indication: HYPERCHOLESTEROLAEMIA
     Dosage: 1 TABLET DAILY
     Route: 048
     Dates: start: 19980101
  4. LEVOTHROID [Concomitant]
     Indication: HYPOTHYROIDISM
     Dosage: 1 TABLET 6 DAYS/WEEK + 1/2 TABLET 1DAY/WEEK
     Route: 048
     Dates: start: 20000101
  5. FLONASE [Concomitant]
     Indication: SEASONAL ALLERGY
     Dosage: 2 SPRAYS EACH NOSTRIL, DAILY
     Route: 045
     Dates: start: 20100101
  6. PREVACID [Concomitant]
     Indication: GASTROOESOPHAGEAL REFLUX DISEASE
     Dosage: 1 TABLET DAILY
     Route: 048
     Dates: start: 20090101
  7. SYMBICORT [Concomitant]
     Indication: CHRONIC OBSTRUCTIVE PULMONARY DISEASE
     Dosage: 2 PUFFS BID
     Route: 055
     Dates: start: 20090101

REACTIONS (2)
  - MALAISE [None]
  - CHEST DISCOMFORT [None]
